FAERS Safety Report 5772149-2 (Version None)
Quarter: 2008Q2

REPORT INFORMATION
  Report Type: 
  Country: None (occurrence: None)
  Receive Date: 20080613
  Receipt Date: 20080604
  Transmission Date: 20081010
  Serious: Yes (Death)
  Sender: FDA-Public Use
  Company Number: AU-JNJFOC-20080503778

PATIENT
  Sex: Male

DRUGS (4)
  1. PROPULSID [Suspect]
     Indication: OBSTRUCTION
     Route: 048
  2. SODIUM PHOSPHATES [Concomitant]
  3. NULYTELY [Concomitant]
  4. RANITIDINE [Concomitant]

REACTIONS (1)
  - CEREBROVASCULAR ACCIDENT [None]
